FAERS Safety Report 8728553 (Version 6)
Quarter: 2019Q3

REPORT INFORMATION
  Report Type: Report from Study
  Country: CZ (occurrence: CZ)
  Receive Date: 20120817
  Receipt Date: 20190723
  Transmission Date: 20191005
  Serious: Yes (Hospitalization)
  Sender: FDA-Public Use
  Company Number: CZ-UCBSA-063319

PATIENT
  Age: 35 Year
  Sex: Female
  Weight: 55 kg

DRUGS (5)
  1. CERTOLIZUMAB PEGOL VS PLACEBO [Suspect]
     Active Substance: CERTOLIZUMAB PEGOL
     Indication: PSORIATIC ARTHROPATHY
     Dosage: OPEN-LABEL PERIOD
     Route: 058
     Dates: start: 20120222, end: 20120725
  2. BRUFEN [Concomitant]
     Active Substance: IBUPROFEN
     Indication: PSORIATIC ARTHROPATHY
     Dosage: 400 MG PRN
     Route: 048
     Dates: start: 201001
  3. CERTOLIZUMAB PEGOL VS PLACEBO [Suspect]
     Active Substance: CERTOLIZUMAB PEGOL
     Dosage: DOUBLE BLIND PERIOD
     Route: 058
     Dates: start: 20110323, end: 20110907
  4. ZOLOFT [Concomitant]
     Active Substance: SERTRALINE HYDROCHLORIDE
     Indication: DEPRESSED MOOD
     Dosage: 50 MG, ONCE DAILY (QD)
     Route: 048
     Dates: start: 201001
  5. CERTOLIZUMAB PEGOL VS PLACEBO [Suspect]
     Active Substance: CERTOLIZUMAB PEGOL
     Dosage: BLINDED DOSAGE PERIOD
     Route: 058
     Dates: start: 20110907, end: 20120222

REACTIONS (1)
  - Pyoderma streptococcal [Recovered/Resolved]

NARRATIVE: CASE EVENT DATE: 20120731
